FAERS Safety Report 5101391-9 (Version None)
Quarter: 2006Q3

REPORT INFORMATION
  Report Type: 
  Country: None (occurrence: None)
  Receive Date: 20060906
  Receipt Date: 20060822
  Transmission Date: 20061208
  Serious: Yes (Other)
  Sender: FDA-Public Use
  Company Number: 2006103047

PATIENT
  Age: 59 Year
  Sex: Male

DRUGS (2)
  1. CAVERJECT [Suspect]
     Indication: ERECTILE DYSFUNCTION
     Dosage: (20 MCG, 1 IN 1 WK), INTRACAVERNOSA
     Route: 017
  2. CYANOCOBALAMIN [Concomitant]

REACTIONS (6)
  - BACK PAIN [None]
  - COMPUTERISED TOMOGRAM ABNORMAL [None]
  - CONDITION AGGRAVATED [None]
  - HYPERSENSITIVITY [None]
  - MULTIPLE MYELOMA [None]
  - RASH [None]
